FAERS Safety Report 5919188-6 (Version None)
Quarter: 2008Q4

REPORT INFORMATION
  Report Type: 
  Country: None (occurrence: None)
  Receive Date: 20081014
  Receipt Date: 20081014
  Transmission Date: 20090506
  Serious: Yes (Other)
  Sender: FDA-Public Use
  Company Number: None

PATIENT
  Age: 37 Year
  Sex: Female
  Weight: 50.8029 kg

DRUGS (2)
  1. SOLODYN [Suspect]
     Indication: DERMATITIS
     Dosage: 1 CAPSULE BY MOUTH DAILY PO
     Route: 048
     Dates: start: 20080522, end: 20080720
  2. MINOCYCLINE HCL [Suspect]
     Dosage: 1 CAPSULE BY MOUTH DAILY PO
     Route: 048
     Dates: start: 20080721, end: 20080827

REACTIONS (4)
  - ARTHRALGIA [None]
  - BONE PAIN [None]
  - LUPUS-LIKE SYNDROME [None]
  - MUSCULOSKELETAL STIFFNESS [None]
